FAERS Safety Report 6748159-5 (Version None)
Quarter: 2010Q2

REPORT INFORMATION
  Report Type: 
  Country: None (occurrence: None)
  Receive Date: 20100531
  Receipt Date: 20100524
  Transmission Date: 20101027
  Serious: Yes (Death, Other)
  Sender: FDA-Public Use
  Company Number: US-BRISTOL-MYERS SQUIBB COMPANY-15118615

PATIENT
  Age: 81 Year
  Sex: Male

DRUGS (3)
  1. COUMADIN [Suspect]
     Dosage: INTERUPTED ON 30OCT07
  2. LOVENOX [Suspect]
     Dosage: AFTER SURGERY ON 31OCT07, EVERY 12 HRS S.C. AND INCREASED TO 60 MG ON 01NOV07.
     Route: 058
     Dates: start: 20071031, end: 20071105
  3. HEPARIN [Suspect]
     Indication: FLUSHING
     Dosage: 1 DF=100 UNITS/ML OF HEPARIN (500 UNITS/5ML VIAL)

REACTIONS (9)
  - ANAEMIA [None]
  - ATELECTASIS [None]
  - BACTERAEMIA [None]
  - CHOLECYSTITIS INFECTIVE [None]
  - COAGULOPATHY [None]
  - INTRA-ABDOMINAL HAEMATOMA [None]
  - PLEURAL EFFUSION [None]
  - URINARY TRACT INFECTION [None]
  - VENTRICULAR TACHYCARDIA [None]
